FAERS Safety Report 8516100-0 (Version None)
Quarter: 2012Q3

REPORT INFORMATION
  Report Type: 
  Country: None (occurrence: None)
  Receive Date: 20120717
  Receipt Date: 20120524
  Transmission Date: 20120928
  Serious: No
  Sender: FDA-Public Use
  Company Number: US-NOVEN-12US004702

PATIENT
  Sex: Female

DRUGS (2)
  1. OXYCODONE HCL [Concomitant]
     Indication: PAIN
     Dosage: 15 MG 1 TO 2 TABLETS FOUR TIMES A DAY AS NEEDED
     Route: 048
  2. FENTANYL [Suspect]
     Indication: PAIN
     Dosage: 100 UG/HR
     Route: 062
     Dates: start: 20120501

REACTIONS (3)
  - NAUSEA [None]
  - HEADACHE [None]
  - DRUG ADMINISTRATION ERROR [None]
